FAERS Safety Report 4273823-X (Version None)
Quarter: 2004Q1

REPORT INFORMATION
  Report Type: 
  Country: None (occurrence: None)
  Receive Date: 20040120
  Receipt Date: 20020605
  Transmission Date: 20041129
  Serious: Yes (Hospitalization)
  Sender: FDA-Public Use
  Company Number: PHBS2002ES06722

PATIENT
  Age: 46 Year
  Sex: Female

DRUGS (3)
  1. TRILEPTAL [Suspect]
     Dosage: 600 MG, BID
     Route: 048
  2. TRILEPTAL [Suspect]
     Dosage: 300 MG, BID
     Route: 048
  3. ANGIOTENSIN CONVERTING ENZYME BLOCKERS [Concomitant]
     Indication: ENZYME INHIBITION

REACTIONS (9)
  - BLOOD CREATININE INCREASED [None]
  - HEPATIC ENZYME INCREASED [None]
  - HEPATIC FAILURE [None]
  - LIVER DISORDER [None]
  - NEPHRITIS INTERSTITIAL [None]
  - PYREXIA [None]
  - RASH [None]
  - RENAL FAILURE [None]
  - VOMITING [None]
